FAERS Safety Report 6937037-4 (Version None)
Quarter: 2010Q3

REPORT INFORMATION
  Report Type: 
  Country: None (occurrence: None)
  Receive Date: 20100823
  Receipt Date: 20100810
  Transmission Date: 20110219
  Serious: Yes (Other)
  Sender: FDA-Public Use
  Company Number: PHHY2010CN51552

PATIENT
  Sex: Male
  Weight: 72 kg

DRUGS (2)
  1. SEBIVO [Suspect]
     Indication: HEPATITIS B
     Dosage: 600 MG, QD
     Route: 048
     Dates: start: 20090701, end: 20100701
  2. NUCLEOSIDE REVERSE TRANSCRIPTASE INHIBITORS [Concomitant]

REACTIONS (7)
  - BLOOD CREATINE PHOSPHOKINASE INCREASED [None]
  - BLOOD CREATINE PHOSPHOKINASE MB INCREASED [None]
  - BLOOD LACTIC ACID INCREASED [None]
  - FATIGUE [None]
  - GAIT DISTURBANCE [None]
  - MUSCLE INJURY [None]
  - MYALGIA [None]
